FAERS Safety Report 7643541-6 (Version None)
Quarter: 2011Q3

REPORT INFORMATION
  Report Type: 
  Country: None (occurrence: None)
  Receive Date: 20110729
  Receipt Date: 20110720
  Transmission Date: 20111222
  Serious: Yes (Hospitalization)
  Sender: FDA-Public Use
  Company Number: CH-JNJFOC-20110106558

PATIENT
  Age: 91 Year
  Sex: Male

DRUGS (10)
  1. TORSEMIDE [Concomitant]
     Route: 048
     Dates: start: 20100922
  2. LISINOPRIL [Concomitant]
     Route: 048
     Dates: start: 20100922, end: 20101027
  3. NOVALGIN [Concomitant]
     Route: 048
     Dates: start: 20100922, end: 20101029
  4. FENTANYL [Suspect]
     Indication: PRODUCT USED FOR UNKNOWN INDICATION
     Route: 062
     Dates: start: 20100922, end: 20101023
  5. LISINOPRIL [Concomitant]
     Route: 048
     Dates: start: 20101028
  6. SACCHAROMYCES BOULARDII [Concomitant]
     Route: 048
     Dates: start: 20100922, end: 20100929
  7. OMEPRAZOLE [Concomitant]
     Route: 048
     Dates: start: 20100922
  8. ACETAMINOPHEN [Concomitant]
     Route: 048
     Dates: start: 20100922, end: 20101023
  9. TRAUMANASE [Concomitant]
     Route: 048
     Dates: start: 20100922, end: 20101023
  10. TRIMIPRAMINE MALEATE [Concomitant]
     Route: 048
     Dates: start: 20100922, end: 20101023

REACTIONS (3)
  - HYPOTENSION [None]
  - DELIRIUM [None]
  - CIRCADIAN RHYTHM SLEEP DISORDER [None]
